FAERS Safety Report 9484096 (Version 1)
Quarter: 2013Q3

REPORT INFORMATION
  Report Type: Spontaneous
  Country: US (occurrence: US)
  Receive Date: 20130828
  Receipt Date: 20130828
  Transmission Date: 20140515
  Serious: Yes (Hospitalization)
  Sender: FDA-Public Use
  Company Number: US-AMGEN-KDL377122

PATIENT
  Age: 61 Year
  Sex: Female

DRUGS (3)
  1. ENBREL [Suspect]
     Indication: RHEUMATOID ARTHRITIS
     Dosage: 50 MG, QWK
     Route: 058
     Dates: start: 20050101
  2. SULFASALAZINE [Concomitant]
     Dosage: 500 MG, QD
     Route: 048
  3. REMICADE [Concomitant]
     Dosage: UNK UNK, UNK
     Dates: start: 200901, end: 20091101

REACTIONS (3)
  - Anaphylactic shock [Recovered/Resolved]
  - Dermal cyst [Recovered/Resolved]
  - Injection site pain [Not Recovered/Not Resolved]
